FAERS Safety Report 6756480-X (Version None)
Quarter: 2010Q2

REPORT INFORMATION
  Report Type: 
  Country: None (occurrence: None)
  Receive Date: 20100604
  Receipt Date: 20100528
  Transmission Date: 20101027
  Serious: Yes (Hospitalization)
  Sender: FDA-Public Use
  Company Number: A0862711A

PATIENT
  Age: 60 Year
  Sex: Male

DRUGS (1)
  1. AVANDIA [Suspect]
     Dosage: 8MG PER DAY
     Route: 048
     Dates: start: 20070101

REACTIONS (5)
  - BACK PAIN [None]
  - CARDIAC DISORDER [None]
  - COUGH [None]
  - SINUSITIS [None]
  - WEIGHT INCREASED [None]
